FAERS Safety Report 9751537 (Version 1)
Quarter: 2013Q4

REPORT INFORMATION
  Report Type: Spontaneous
  Country: US (occurrence: US)
  Receive Date: 20131212
  Receipt Date: 20131212
  Transmission Date: 20140711
  Serious: No
  Sender: FDA-Public Use
  Company Number: US-PURDUE-USA-2013-0104212

PATIENT
  Sex: Female

DRUGS (2)
  1. DILAUDID TABLET [Suspect]
     Indication: PAIN
     Route: 048
  2. MORPHINE SULFATE (SIMILAR TO NDA 19-516) [Suspect]
     Indication: PAIN
     Route: 048

REACTIONS (2)
  - Arthralgia [Unknown]
  - Pain in extremity [Unknown]
